FAERS Safety Report 4861730-0 (Version None)
Quarter: 2005Q4

REPORT INFORMATION
  Report Type: 
  Country: None (occurrence: None)
  Receive Date: 20051220
  Receipt Date: 20050606
  Transmission Date: 20060501
  Serious: Yes (Death)
  Sender: FDA-Public Use
  Company Number: US-MERCK-0506USA01029

PATIENT
  Age: 38 Year
  Sex: Male
  Weight: 121 kg

DRUGS (2)
  1. VIOXX [Suspect]
     Indication: ARTHRALGIA
     Route: 048
     Dates: end: 20030501
  2. VIOXX [Suspect]
     Route: 048
     Dates: end: 20050501

REACTIONS (6)
  - CARDIO-RESPIRATORY ARREST [None]
  - HEPATOMEGALY [None]
  - HYPERTROPHIC CARDIOMYOPATHY [None]
  - LOSS OF CONSCIOUSNESS [None]
  - SPLENOMEGALY [None]
  - SUDDEN CARDIAC DEATH [None]
